FAERS Safety Report 8610744-3 (Version None)
Quarter: 2012Q3

REPORT INFORMATION
  Report Type: 
  Country: None (occurrence: None)
  Receive Date: 20120822
  Receipt Date: 20120814
  Transmission Date: 20120928
  Serious: Yes (Other)
  Sender: FDA-Public Use
  Company Number: DE-JNJFOC-20120808960

PATIENT

DRUGS (3)
  1. GALANTAMINE HYDROBROMIDE [Suspect]
     Indication: COGNITIVE DISORDER
     Dosage: WITH DOSE TITRATION OVER 8 WEEKS
     Route: 065
  2. PLACEBO [Suspect]
     Indication: COGNITIVE DISORDER
     Route: 065
  3. MEMANTINE HCL [Suspect]
     Indication: COGNITIVE DISORDER
     Route: 065

REACTIONS (8)
  - COGNITIVE DISORDER [None]
  - TREMOR [None]
  - ABDOMINAL PAIN [None]
  - NAUSEA [None]
  - ASTHENIA [None]
  - TACHYCARDIA [None]
  - VERTIGO [None]
  - HEADACHE [None]
